FAERS Safety Report 10312567 (Version 1)
Quarter: 2014Q3

REPORT INFORMATION
  Report Type: Report from Study
  Country: CA (occurrence: CA)
  Receive Date: 20140718
  Receipt Date: 20140718
  Transmission Date: 20150326
  Serious: Yes (Other)
  Sender: FDA-Public Use
  Company Number: CA-BRISTOL-MYERS SQUIBB COMPANY-21199443

PATIENT
  Age: 59 Year
  Sex: Male

DRUGS (6)
  1. FOLIC ACID. [Concomitant]
     Active Substance: FOLIC ACID
  2. PREDNISONE. [Concomitant]
     Active Substance: PREDNISONE
  3. NAPROXEN. [Concomitant]
     Active Substance: NAPROXEN
  4. METHOTREXATE [Concomitant]
     Active Substance: METHOTREXATE
  5. VITAMIN B1 + B6 [Concomitant]
  6. ORENCIA [Suspect]
     Active Substance: ABATACEPT
     Indication: RHEUMATOID ARTHRITIS
     Route: 042
     Dates: start: 20080717

REACTIONS (1)
  - Inguinal hernia [Unknown]

NARRATIVE: CASE EVENT DATE: 201405
